FAERS Safety Report 7541242-6 (Version None)
Quarter: 2011Q2

REPORT INFORMATION
  Report Type: 
  Country: None (occurrence: None)
  Receive Date: 20110610
  Receipt Date: 20110602
  Transmission Date: 20111010
  Serious: Yes (Hospitalization, Disabling)
  Sender: FDA-Public Use
  Company Number: JP-MERCK-1106USA00728

PATIENT
  Age: 46 Year
  Sex: Male

DRUGS (4)
  1. CRESTOR [Concomitant]
     Route: 065
  2. JANUVIA [Suspect]
     Indication: TYPE 2 DIABETES MELLITUS
     Route: 048
  3. AMARYL [Concomitant]
     Route: 065
  4. NITRAZEPAM [Concomitant]
     Route: 065

REACTIONS (1)
  - PULMONARY INFARCTION [None]
